FAERS Safety Report 6071355-X (Version None)
Quarter: 2009Q1

REPORT INFORMATION
  Report Type: 
  Country: None (occurrence: None)
  Receive Date: 20090204
  Receipt Date: 20090127
  Transmission Date: 20090719
  Serious: Yes (Life-Threatening)
  Sender: FDA-Public Use
  Company Number: GXKR2009US01195

PATIENT
  Age: 59 Year
  Sex: Female

DRUGS (1)
  1. FLUOXETINE [Suspect]

REACTIONS (6)
  - ANXIETY [None]
  - CHOLESTATIC LIVER INJURY [None]
  - DEPRESSION [None]
  - HEPATIC FAILURE [None]
  - LIVER TRANSPLANT [None]
  - UTERINE CANCER [None]
